FAERS Safety Report 9733916 (Version 3)
Quarter: 2013Q4

REPORT INFORMATION
  Report Type: Report from Study
  Country: US (occurrence: US)
  Receive Date: 20131205
  Receipt Date: 20131219
  Transmission Date: 20140711
  Serious: Yes (Other)
  Sender: FDA-Public Use
  Company Number: US-PFIZER INC-2013337936

PATIENT
  Age: 85 Year
  Sex: Female
  Weight: 70.75 kg

DRUGS (20)
  1. CELECOXIB [Suspect]
     Indication: OSTEOARTHRITIS
     Dosage: 100-200 MG, BID
     Route: 048
     Dates: start: 20130611, end: 20130805
  2. CELECOXIB [Suspect]
     Indication: RHEUMATOID ARTHRITIS
  3. NEXIUM [Concomitant]
     Indication: PROPHYLAXIS
     Dosage: 20 MG, QD
     Route: 048
     Dates: start: 20130611, end: 20130819
  4. LEVOTHYROXINE [Concomitant]
     Indication: HYPOTHYROIDISM
     Dosage: 100 UG, QD
     Route: 048
     Dates: start: 2005
  5. CALCIUM WITH VITAMIN D [Concomitant]
     Indication: NUTRITIONAL SUPPLEMENTATION
     Dosage: 2 TABLETS, QD
     Route: 048
     Dates: start: 2003
  6. CYANOCOBALAMIN [Concomitant]
     Indication: NUTRITIONAL SUPPLEMENTATION
     Dosage: 1 TABLET, QD
     Route: 048
     Dates: start: 2011
  7. LISINOPRIL [Concomitant]
     Indication: HYPERTENSION
     Dosage: 20 MG, QD
     Route: 048
     Dates: start: 2005
  8. SIMVASTATIN [Concomitant]
     Indication: DYSLIPIDAEMIA
     Dosage: 20 MG, QD
     Route: 048
     Dates: start: 2005
  9. HYDROCHLOROTHIAZIDE [Concomitant]
     Indication: HYPERTENSION
     Dosage: 25 MG, QD
     Route: 048
     Dates: start: 201205
  10. NAPROXEN [Concomitant]
     Indication: OSTEOARTHRITIS
     Dosage: 440 MG, QD
     Route: 048
     Dates: start: 20130823
  11. AMLODIPINE [Concomitant]
     Indication: HYPERTENSION
     Dosage: 5 MG, QD
     Route: 048
     Dates: start: 20130604
  12. DEMADEX [Concomitant]
     Indication: OEDEMA
     Dosage: 20 MG, QD
     Route: 048
     Dates: start: 20130711
  13. ONDANSETRON [Concomitant]
     Indication: VERTIGO
     Dosage: 4 MG, Q 8 HOURS
     Route: 048
     Dates: start: 20130809, end: 20130821
  14. MECLIZINE [Concomitant]
     Indication: VERTIGO
     Dosage: 25 MG, 3X/DAY
     Route: 048
     Dates: start: 20130809, end: 20130821
  15. OFLOXACIN [Concomitant]
     Indication: TYMPANIC MEMBRANE PERFORATION
     Dosage: 5 GTT, 2X/DAY; ROUTE: EAR
     Dates: start: 20130809, end: 20130814
  16. CEPHALEXIN [Concomitant]
     Indication: TYMPANIC MEMBRANE PERFORATION
     Dosage: 500 MG, 4X/DAY
     Route: 048
     Dates: start: 20130821, end: 20130831
  17. FLUTICASONE [Concomitant]
     Indication: TYMPANIC MEMBRANE PERFORATION
     Dosage: 2 SPRAYS, 2X/DAY; ROUTE: INH
     Route: 055
     Dates: start: 20130821, end: 20130831
  18. ASPIRIN [Concomitant]
     Indication: CARDIOVASCULAR EVENT PROPHYLAXIS
     Dosage: 81 MG, 1X/DAY
     Route: 048
     Dates: start: 2005
  19. GABAPENTIN [Concomitant]
     Indication: NEUROPATHY PERIPHERAL
     Dosage: 200 MG, 1X/DAY
     Route: 048
     Dates: start: 20130301
  20. MULTIVITAMINS [Concomitant]
     Indication: NUTRITIONAL SUPPLEMENTATION
     Dosage: 1 TAB, 1X/DAY
     Route: 048
     Dates: start: 2003

REACTIONS (1)
  - Renal failure chronic [Recovered/Resolved]
